FAERS Safety Report 6472595-8 (Version None)
Quarter: 2009Q4

REPORT INFORMATION
  Report Type: 
  Country: None (occurrence: None)
  Receive Date: 20091203
  Receipt Date: 20081209
  Transmission Date: 20100525
  Serious: No
  Sender: FDA-Public Use
  Company Number: US-AMGEN-KDL323269

PATIENT
  Sex: Female

DRUGS (3)
  1. ENBREL [Suspect]
     Indication: REITER'S SYNDROME
     Route: 058
     Dates: start: 20081111
  2. ENBREL [Suspect]
     Indication: DRUG USE FOR UNKNOWN INDICATION
  3. ENBREL [Suspect]
     Indication: SJOGREN'S SYNDROME

REACTIONS (1)
  - NASOPHARYNGITIS [None]
